FAERS Safety Report 5809943-5 (Version None)
Quarter: 2008Q3

REPORT INFORMATION
  Report Type: 
  Country: None (occurrence: None)
  Receive Date: 20080714
  Receipt Date: 20080714
  Transmission Date: 20090109
  Serious: Yes (Other)
  Sender: FDA-Public Use
  Company Number: None

PATIENT
  Sex: Female
  Weight: 52.1637 kg

DRUGS (1)
  1. GEMCITABINE [Suspect]
     Indication: BREAST CANCER METASTATIC
     Dosage: ONCE IV
     Route: 042
     Dates: start: 20080324, end: 20080324

REACTIONS (2)
  - DIPLOPIA [None]
  - DYSARTHRIA [None]
